FAERS Safety Report 9521423 (Version 1)
Quarter: 2013Q1

REPORT INFORMATION
  Report Type: Spontaneous
  Country: US (occurrence: None)
  Receive Date: 20130305
  Receipt Date: 20130305
  Transmission Date: 20140127
  Serious: Yes (Other)
  Sender: FDA-Public Use
  Company Number: 163-21880-12073191

PATIENT
  Age: 84 Year
  Sex: Female
  Weight: 59.4 kg

DRUGS (9)
  1. REVLIMID [Suspect]
     Indication: PLASMA CELL MYELOMA
     Route: 048
     Dates: start: 200903
  2. PREDNISONE (PREDNISONE) [Concomitant]
  3. DEXAMETHASONE (DEXAMETHASONE) [Concomitant]
  4. SYNTHROID (LEVOTHYROXINE SODIUM) [Concomitant]
  5. ENALAPRIL-HCTZ (VASERETIC) [Concomitant]
  6. AZITHROMYCIN (AZITHROMYCIN) [Concomitant]
  7. LEVOFLOXACIN (LEVOFLOXACIN) [Concomitant]
  8. VENTOLIN (SALBUTAMOL) [Concomitant]
  9. IBUPROFEN (IBUPROFEN) [Concomitant]

REACTIONS (1)
  - Contusion [None]
